FAERS Safety Report 9071150 (Version 1)
Quarter: 2013Q1

REPORT INFORMATION
  Report Type: Spontaneous
  Country: US (occurrence: US)
  Receive Date: 20130206
  Receipt Date: 20130206
  Transmission Date: 20140127
  Serious: No
  Sender: FDA-Public Use
  Company Number: US-ALLERGAN-1209420US

PATIENT
  Sex: Female

DRUGS (4)
  1. RESTASIS? [Suspect]
     Indication: DRY EYE
     Dosage: 2 GTT, BID
     Route: 047
     Dates: start: 20120708, end: 201207
  2. RESTASIS? [Suspect]
     Dosage: 2 GTT, BID
     Route: 047
  3. CRESTOR                            /01588601/ [Concomitant]
     Indication: BLOOD CHOLESTEROL INCREASED
     Dosage: UNK UNK, QD
     Route: 048
  4. SYSTANE [Concomitant]
     Indication: DRY EYE
     Dosage: 2 GTT, PRN
     Route: 047

REACTIONS (4)
  - Abnormal sensation in eye [Recovered/Resolved]
  - Burning sensation [Recovered/Resolved]
  - Eye pain [Recovered/Resolved]
  - Instillation site pain [Recovered/Resolved]
